FAERS Safety Report 13285666 (Version 1)
Quarter: 2017Q1

REPORT INFORMATION
  Report Type: Report from Study
  Country: JP (occurrence: JP)
  Receive Date: 20170302
  Receipt Date: 20170302
  Transmission Date: 20170428
  Serious: Yes (Death, Other)
  Sender: FDA-Public Use
  Company Number: JP-INCYTE CORPORATION-2017IN001460

PATIENT
  Age: 86 Year
  Sex: Female
  Weight: 158 kg

DRUGS (1)
  1. JAKAVI [Suspect]
     Active Substance: RUXOLITINIB
     Indication: MYELOFIBROSIS
     Dosage: 5 MG, BID
     Route: 048
     Dates: start: 20160625, end: 20160808

REACTIONS (4)
  - Cardiac failure [Unknown]
  - Myelofibrosis [Unknown]
  - Death [Fatal]
  - Anaemia [Not Recovered/Not Resolved]

NARRATIVE: CASE EVENT DATE: 20160625
